FAERS Safety Report 22281752 (Version 1)
Quarter: 2023Q2

REPORT INFORMATION
  Report Type: Spontaneous
  Country: CA (occurrence: CA)
  Receive Date: 20230504
  Receipt Date: 20230504
  Transmission Date: 20230722
  Serious: Yes (Other)
  Sender: FDA-Public Use
  Company Number: CA-SA-SAC20230426001455

PATIENT
  Age: 67 Year
  Sex: Male
  Weight: 96 kg

DRUGS (4)
  1. CABAZITAXEL [Suspect]
     Active Substance: CABAZITAXEL
     Indication: Prostate cancer
     Dosage: 43 MG, Q21D
     Route: 041
  2. CETIRIZINE [Concomitant]
     Active Substance: CETIRIZINE HYDROCHLORIDE
     Dosage: UNK
  3. DEXAMETHASONE [Concomitant]
     Active Substance: DEXAMETHASONE
     Dosage: UNK, FORMULATION: LIQUID INTRA-ARTICULAR
  4. FAMOTIDINE [Concomitant]
     Active Substance: FAMOTIDINE
     Dosage: UNK, FORMULATION: SOLUTION INTRAVENOUS

REACTIONS (6)
  - Chest discomfort [Recovered/Resolved]
  - Heart rate increased [Recovered/Resolved]
  - Oxygen saturation decreased [Recovered/Resolved]
  - Flushing [Recovered/Resolved]
  - Dizziness [Recovered/Resolved]
  - Dyspnoea [Recovered/Resolved]
